FAERS Safety Report 13512069 (Version 1)
Quarter: 2017Q2

REPORT INFORMATION
  Report Type: Spontaneous
  Country: US (occurrence: US)
  Receive Date: 20170503
  Receipt Date: 20170503
  Transmission Date: 20170830
  Serious: No
  Sender: FDA-Public Use
  Company Number: None

PATIENT
  Age: 18 Year
  Sex: Male

DRUGS (1)
  1. SIROLIMUS. [Suspect]
     Active Substance: SIROLIMUS
     Indication: EVANS SYNDROME
     Route: 048
     Dates: start: 20151112, end: 20170403

REACTIONS (1)
  - Stomatitis [None]

NARRATIVE: CASE EVENT DATE: 20170401
